FAERS Safety Report 4843068-0 (Version None)
Quarter: 2005Q4

REPORT INFORMATION
  Report Type: 
  Country: None (occurrence: None)
  Receive Date: 20051201
  Receipt Date: 20040413
  Transmission Date: 20060501
  Serious: Yes (Death)
  Sender: FDA-Public Use
  Company Number: DK-BOEHRINGER INGELHEIM PHARMACEUTICALS, INC.-2005-SW-00556DB

PATIENT

DRUGS (1)
  1. SPIRIVA [Suspect]
     Route: 055

REACTIONS (1)
  - DEATH [None]
